FAERS Safety Report 21396814 (Version 3)
Quarter: 2022Q4

REPORT INFORMATION
  Report Type: Report from Study
  Country: US (occurrence: US)
  Receive Date: 20220930
  Receipt Date: 20221201
  Transmission Date: 20230112
  Serious: Yes (Death, Life-Threatening, Hospitalization)
  Sender: FDA-Public Use
  Company Number: US-PFIZER INC-PV202200071428

PATIENT
  Age: 57 Year
  Sex: Female
  Weight: 55.5 kg

DRUGS (3)
  1. BINIMETINIB [Suspect]
     Active Substance: BINIMETINIB
     Indication: Breast cancer metastatic
     Dosage: UNK, CYCLIC
     Dates: start: 20220819, end: 20220825
  2. ZEN-003694 [Suspect]
     Active Substance: ZEN-003694
     Indication: Breast cancer metastatic
     Dosage: UNK, CYCLIC
     Dates: start: 20220819, end: 20220825
  3. CITALOPRAM [Suspect]
     Active Substance: CITALOPRAM HYDROBROMIDE

REACTIONS (4)
  - Dyspnoea [Fatal]
  - Hyponatraemia [Recovered/Resolved]
  - Nausea [Recovered/Resolved]
  - Vomiting [Recovered/Resolved]

NARRATIVE: CASE EVENT DATE: 20220825
